FAERS Safety Report 9500394 (Version 1)
Quarter: 2013Q1

REPORT INFORMATION
  Report Type: Spontaneous
  Country: US (occurrence: None)
  Receive Date: 20130118
  Receipt Date: 20130118
  Transmission Date: 20140127
  Serious: No
  Sender: FDA-Public Use
  Company Number: A-NJ2012-62464

PATIENT
  Age: 67 Year
  Sex: Female

DRUGS (7)
  1. TRACLEER [Suspect]
     Indication: PULMONARY ARTERIAL HYPERTENSION
     Route: 048
     Dates: start: 20110408
  2. REVATIO (SILDENAFIL CITRATE) (UNKNOWN) (SILDENAFIL) [Concomitant]
  3. COUMADIN (WARFARIN SODIUM) [Concomitant]
  4. TREPROSTINIL (TREPROSTINIL) [Concomitant]
  5. DIGOXIN (DIGOXIN) [Concomitant]
  6. ARANESP (DARBEPOETIN ALFA) [Concomitant]
  7. OXYGEN (OXYGEN) [Concomitant]

REACTIONS (3)
  - Respiratory tract infection [None]
  - Dyspnoea [None]
  - Cough [None]
